FAERS Safety Report 12577369 (Version 2)
Quarter: 2017Q2

REPORT INFORMATION
  Report Type: Spontaneous
  Country: US (occurrence: US)
  Receive Date: 20160720
  Receipt Date: 20170412
  Transmission Date: 20170830
  Serious: Yes (Other)
  Sender: FDA-Public Use
  Company Number: US-B.I. PHARMACEUTICALS,INC./RIDGEFIELD-2016-BI-46949BI

PATIENT
  Sex: Female

DRUGS (14)
  1. LIPITOR [Concomitant]
     Active Substance: ATORVASTATIN CALCIUM
     Indication: PRODUCT USED FOR UNKNOWN INDICATION
     Route: 048
     Dates: start: 20140508
  2. SYMBICORT [Concomitant]
     Active Substance: BUDESONIDE\FORMOTEROL FUMARATE DIHYDRATE
     Indication: PRODUCT USED FOR UNKNOWN INDICATION
     Dosage: STRENGTH: 160 MCG-4.5 MCG/ ACTUATION HFA AEROSOL INHALER
     Route: 055
     Dates: start: 20140508
  3. LYRICA [Concomitant]
     Active Substance: PREGABALIN
     Indication: PRODUCT USED FOR UNKNOWN INDICATION
     Route: 048
     Dates: start: 20140610
  4. TAPAZOLE [Concomitant]
     Active Substance: METHIMAZOLE
     Indication: PRODUCT USED FOR UNKNOWN INDICATION
     Route: 048
     Dates: start: 20140508
  5. VENTOLIN HFA [Concomitant]
     Active Substance: ALBUTEROL SULFATE
     Indication: PRODUCT USED FOR UNKNOWN INDICATION
     Dosage: STRENGTH: 90 MCG/ACTUATION AEROSOL INHALER, INHALE 2 PUFF BY INHALATION ROUTE EVERY 4-6 HOURS AS NEE
     Route: 055
     Dates: start: 20140508
  6. INSULIN [Concomitant]
     Active Substance: INSULIN NOS
     Indication: DIABETES MELLITUS INADEQUATE CONTROL
     Dosage: STRENGTH: 15 UNITS
     Route: 065
  7. DILTIAZEM ER [Concomitant]
     Active Substance: DILTIAZEM
     Indication: PRODUCT USED FOR UNKNOWN INDICATION
     Route: 048
     Dates: start: 20140508
  8. PRADAXA [Suspect]
     Active Substance: DABIGATRAN ETEXILATE MESYLATE
     Indication: ATRIAL FIBRILLATION
     Route: 048
     Dates: start: 20120706, end: 20140819
  9. MECLIZINE [Concomitant]
     Active Substance: MECLIZINE HYDROCHLORIDE
     Indication: PRODUCT USED FOR UNKNOWN INDICATION
     Dosage: AS NEEDED
     Route: 048
     Dates: start: 20140610
  10. NOVOLIN R [Concomitant]
     Active Substance: INSULIN HUMAN
     Indication: PRODUCT USED FOR UNKNOWN INDICATION
     Dosage: STRENGTH: 100 UNIT/ML INJECTION, INJECT 10-15 UNITS BY SUBCUTANEOUS ROUTE 3 TIME DAILY WITH MEALS AS
     Route: 058
     Dates: start: 20140508
  11. GLARGINE [Concomitant]
     Indication: DIABETES MELLITUS INADEQUATE CONTROL
     Dosage: DOSE: 75 UNITS AT BEDTIME
     Route: 065
  12. LANTUS [Concomitant]
     Active Substance: INSULIN GLARGINE
     Indication: PRODUCT USED FOR UNKNOWN INDICATION
     Dosage: STRENGTH: 100 UNIT/ML, DOSE: INJECT 75 UNITS BY SUBQ ROUTE EVERY BEDTIME AS PER INSULIN PROTOCOL
     Route: 058
     Dates: start: 20140508
  13. LISINOPRIL. [Concomitant]
     Active Substance: LISINOPRIL
     Indication: HYPERTENSION
     Route: 048
     Dates: start: 20140508
  14. TRAMADOL. [Concomitant]
     Active Substance: TRAMADOL
     Indication: PAIN
     Route: 048
     Dates: start: 20140508

REACTIONS (1)
  - Internal haemorrhage [Unknown]
